FAERS Safety Report 23479141 (Version 2)
Quarter: 2024Q2

REPORT INFORMATION
  Report Type: Spontaneous
  Country: JP (occurrence: JP)
  Receive Date: 20240205
  Receipt Date: 20240607
  Transmission Date: 20240716
  Serious: Yes (Death, Hospitalization, Other)
  Sender: FDA-Public Use
  Company Number: JP-BRISTOL-MYERS SQUIBB COMPANY-2023-092759

PATIENT
  Age: 79 Year
  Sex: Male

DRUGS (4)
  1. YERVOY [Suspect]
     Active Substance: IPILIMUMAB
     Indication: Non-small cell lung cancer recurrent
     Dosage: THE 1ST DOSE
     Route: 041
     Dates: start: 20230119, end: 20230119
  2. YERVOY [Suspect]
     Active Substance: IPILIMUMAB
     Dosage: THE 2ND DOSE
     Route: 041
     Dates: start: 20230302, end: 20230302
  3. OPDIVO [Suspect]
     Active Substance: NIVOLUMAB
     Indication: Non-small cell lung cancer recurrent
     Dosage: THE 1ST DOSE
     Route: 041
     Dates: start: 20230119, end: 20230119
  4. OPDIVO [Suspect]
     Active Substance: NIVOLUMAB
     Dosage: THE 2ND DOSE
     Route: 041
     Dates: start: 20230302, end: 20230302

REACTIONS (6)
  - Pruritus [Recovering/Resolving]
  - Neuropathy peripheral [Recovering/Resolving]
  - Interstitial lung disease [Not Recovered/Not Resolved]
  - Pleural effusion [Fatal]
  - Respiratory failure [Fatal]
  - Eczema [Unknown]

NARRATIVE: CASE EVENT DATE: 20230201
